FAERS Safety Report 9381912 (Version 2)
Quarter: 2019Q4

REPORT INFORMATION
  Report Type: Spontaneous
  Country: DE (occurrence: DE)
  Receive Date: 20130703
  Receipt Date: 20191128
  Transmission Date: 20200122
  Serious: Yes (Death, Life-Threatening, Hospitalization)
  Sender: FDA-Public Use
  Company Number: PHHY2013DE069023

PATIENT
  Age: 74 Year
  Sex: Female

DRUGS (1)
  1. METFORMIN HYDROCHLORIDE. [Suspect]
     Active Substance: METFORMIN HYDROCHLORIDE
     Indication: DIABETES MELLITUS
     Dosage: 1.7 G, DAILY(DAILY DOSE TEXT :1.7 G/DAY)
     Route: 065

REACTIONS (9)
  - Shock [Fatal]
  - Diabetic nephropathy [Not Recovered/Not Resolved]
  - Renal failure [Fatal]
  - Drug level increased [Not Recovered/Not Resolved]
  - Cardiogenic shock [Fatal]
  - Multiple organ dysfunction syndrome [Not Recovered/Not Resolved]
  - Lactic acidosis [Fatal]
  - Acute kidney injury [Not Recovered/Not Resolved]
  - Anuria [Not Recovered/Not Resolved]
